FAERS Safety Report 18582334 (Version 1)
Quarter: 2020Q4

REPORT INFORMATION
  Report Type: Spontaneous
  Country: US (occurrence: US)
  Receive Date: 20201204
  Receipt Date: 20201204
  Transmission Date: 20210114
  Serious: Yes (Life-Threatening, Hospitalization)
  Sender: FDA-Public Use
  Company Number: None

PATIENT
  Age: 77 Year
  Sex: Female
  Weight: 60 kg

DRUGS (2)
  1. KRATOM RED BORNEO [Suspect]
     Active Substance: HERBALS\MITRAGYNINE
     Route: 048
  2. VENLAFAXINE 75 MG ER [Suspect]
     Active Substance: VENLAFAXINE HYDROCHLORIDE
     Dates: start: 20180328

REACTIONS (4)
  - Serotonin syndrome [None]
  - Hyperthermia [None]
  - Psychotic disorder [None]
  - Encephalopathy [None]

NARRATIVE: CASE EVENT DATE: 20201202
